FAERS Safety Report 18201087 (Version 3)
Quarter: 2025Q3

REPORT INFORMATION
  Report Type: Spontaneous
  Country: US (occurrence: US)
  Receive Date: 20200827
  Receipt Date: 20250911
  Transmission Date: 20251021
  Serious: Yes (Life-Threatening, Hospitalization, Other)
  Sender: ACCORD
  Company Number: US-ACCORD-197432

PATIENT
  Age: 42 Year
  Sex: Female

DRUGS (5)
  1. HYDROXYCHLOROQUINE [Suspect]
     Active Substance: HYDROXYCHLOROQUINE
     Indication: Systemic lupus erythematosus
  2. ANAKINRA [Concomitant]
     Active Substance: ANAKINRA
     Indication: Juvenile idiopathic arthritis
     Route: 058
  3. HYDROCORTISONE [Concomitant]
     Active Substance: HYDROCORTISONE
     Indication: Juvenile idiopathic arthritis
     Dosage: 20 MG EVERY MORNING AND 10 MG IN THE?AFTERNOON
  4. HYDROXYCHLOROQUINE [Suspect]
     Active Substance: HYDROXYCHLOROQUINE
     Indication: Systemic lupus erythematosus
  5. HYDROCORTISONE [Concomitant]
     Active Substance: HYDROCORTISONE
     Indication: Juvenile idiopathic arthritis
     Dosage: 20 MG EVERY MORNING AND 10 MG IN THE?AFTERNOON

REACTIONS (15)
  - Myopathy toxic [Recovered/Resolved]
  - Respiratory failure [Recovered/Resolved]
  - Encephalopathy [Recovered/Resolved]
  - Respiratory acidosis [Recovered/Resolved]
  - Hypercapnia [Recovered/Resolved]
  - Pneumothorax [Recovered/Resolved]
  - Diaphragm muscle weakness [Recovered/Resolved]
  - Fall [Recovered/Resolved]
  - Embolic stroke [Recovered/Resolved]
  - Cervical vertebral fracture [Recovered/Resolved]
  - Subarachnoid haemorrhage [Recovered/Resolved]
  - Tibia fracture [Recovered/Resolved]
  - Toxicity to various agents [Recovered/Resolved]
  - Muscle injury [Recovered/Resolved]
  - Encephalomalacia [Recovered/Resolved]
